FAERS Safety Report 11611184 (Version 1)
Quarter: 2015Q4

REPORT INFORMATION
  Report Type: Spontaneous
  Country: US (occurrence: None)
  Receive Date: 20151007
  Receipt Date: 20151007
  Transmission Date: 20160304
  Serious: Yes (Hospitalization)
  Sender: FDA-Public Use
  Company Number: None

PATIENT
  Age: 69 Year
  Sex: Male
  Weight: 90.7 kg

DRUGS (1)
  1. WARFARIN [Suspect]
     Active Substance: WARFARIN
     Indication: ATRIAL FLUTTER
     Route: 048

REACTIONS (7)
  - Haematocrit decreased [None]
  - White blood cell count decreased [None]
  - Haemoglobin decreased [None]
  - Gastrointestinal haemorrhage [None]
  - Platelet count decreased [None]
  - Supraventricular tachycardia [None]
  - Red blood cell count decreased [None]

NARRATIVE: CASE EVENT DATE: 20150722
